FAERS Safety Report 14935938 (Version 5)
Quarter: 2019Q4

REPORT INFORMATION
  Report Type: Spontaneous
  Country: JP (occurrence: JP)
  Receive Date: 20180524
  Receipt Date: 20191108
  Transmission Date: 20200122
  Serious: Yes (Hospitalization, Other)
  Sender: FDA-Public Use
  Company Number: JP-GLAXOSMITHKLINE-JP2018JPN089889

PATIENT
  Age: 87 Year
  Sex: Male

DRUGS (3)
  1. VALTREX [Suspect]
     Active Substance: VALACYCLOVIR HYDROCHLORIDE
     Indication: HERPES ZOSTER
     Dosage: 1000 MG, TID
     Route: 048
     Dates: start: 20180515, end: 20180518
  2. ISOCORONAL R [Concomitant]
     Active Substance: ISOSORBIDE DINITRATE
     Dosage: 20 MG, BID
     Route: 048
     Dates: end: 201805
  3. BISOPROLOL [Concomitant]
     Active Substance: BISOPROLOL
     Dosage: 2.5 MG, 1D
     Route: 048
     Dates: end: 20180601

REACTIONS (10)
  - Prescribed overdose [Unknown]
  - Renal impairment [Recovered/Resolved]
  - Disuse syndrome [Unknown]
  - Decreased appetite [Unknown]
  - Toxic encephalopathy [Unknown]
  - Delirium [Unknown]
  - Altered state of consciousness [Recovered/Resolved]
  - Oliguria [Unknown]
  - Gait disturbance [Unknown]
  - Inflammation [Unknown]

NARRATIVE: CASE EVENT DATE: 20180515
